FAERS Safety Report 7502147-X (Version None)
Quarter: 2011Q2

REPORT INFORMATION
  Report Type: 
  Country: None (occurrence: None)
  Receive Date: 20110523
  Receipt Date: 20110523
  Transmission Date: 20111010
  Serious: Yes (Hospitalization)
  Sender: FDA-Public Use
  Company Number: None

PATIENT
  Age: 67 Year
  Sex: Male
  Weight: 84.369 kg

DRUGS (9)
  1. MIDODRINE HYDROCHLORIDE [Concomitant]
  2. BACLOFEN [Concomitant]
  3. LENALIDOMIDE [Suspect]
     Indication: HODGKIN'S DISEASE
     Dosage: 15MG PO DAILY
     Route: 048
  4. SPIRONOLACTONE [Concomitant]
  5. CAPTOPRIL [Concomitant]
  6. LACTULOSE [Concomitant]
  7. FUROSEMIDE [Concomitant]
  8. CEFAZOLIN [Concomitant]
  9. DOCUSATE [Concomitant]

REACTIONS (3)
  - PULMONARY HYPERTENSION [None]
  - CARDIAC FAILURE CONGESTIVE [None]
  - MYOCARDIAL ISCHAEMIA [None]
